FAERS Safety Report 5513162-X (Version None)
Quarter: 2007Q4

REPORT INFORMATION
  Report Type: 
  Country: None (occurrence: None)
  Receive Date: 20071112
  Receipt Date: 20070313
  Transmission Date: 20080405
  Serious: No
  Sender: FDA-Public Use
  Company Number: US-BRISTOL-MYERS SQUIBB COMPANY-13712401

PATIENT
  Age: 45 Year
  Sex: Male
  Weight: 97 kg

DRUGS (3)
  1. SUSTIVA [Suspect]
     Indication: HIV INFECTION
     Dates: start: 20070312
  2. COMBIVIR [Concomitant]
  3. NEURONTIN [Concomitant]

REACTIONS (1)
  - NIGHTMARE [None]
